FAERS Safety Report 5676000-0 (Version None)
Quarter: 2008Q1

REPORT INFORMATION
  Report Type: 
  Country: None (occurrence: None)
  Receive Date: 20080318
  Receipt Date: 20080307
  Transmission Date: 20080703
  Serious: Yes (Hospitalization)
  Sender: FDA-Public Use
  Company Number: 2006-05461

PATIENT
  Age: 74 Year
  Sex: Male
  Weight: 93.4 kg

DRUGS (22)
  1. DIAZEPAM [Suspect]
     Indication: ANXIETY
     Dosage: 7.5 MG, QHS, ORAL
     Route: 048
     Dates: start: 19990101
  2. HYDROCODONE BITARTRATE/ACETAMINOPHEN UNKNOWN STRENGTH (WATSON)(ACETAMI [Suspect]
     Dosage: 2 TABLET, QHS, ORAL
     Route: 048
     Dates: start: 20000101, end: 20051221
  3. SU-011, 248 (SUNITINIB MALATE)() 50MG [Suspect]
     Indication: RENAL CELL CARCINOMA
     Dosage: 37.5 MG, DAILY, ORAL; 1 TABLET, QD (4WKS ON, 2WKS OFF), ORAL
     Route: 048
     Dates: start: 20051026, end: 20051122
  4. SU-011, 248 (SUNITINIB MALATE)() 50MG [Suspect]
     Indication: RENAL CELL CARCINOMA
     Dosage: 37.5 MG, DAILY, ORAL; 1 TABLET, QD (4WKS ON, 2WKS OFF), ORAL
     Route: 048
     Dates: start: 20051209
  5. DOXEPIN (PFIZER)(DOXEPIN) CAPSULES [Suspect]
     Indication: DEPRESSION
     Dosage: 20 MG/1-2 TABLET ,QHS
     Dates: start: 19970101
  6. AMBIEN [Suspect]
     Indication: INSOMNIA
     Dosage: 1 - 2 TABLET, QHS, ORAL
     Route: 048
     Dates: start: 19990101
  7. OXYCONTIN [Concomitant]
  8. METFORMIN HCL [Concomitant]
  9. LANTUS [Concomitant]
  10. LIPITOR [Concomitant]
  11. ZETIA [Concomitant]
  12. ALTACE [Concomitant]
  13. ATENOLOL [Concomitant]
  14. TAMSULOSIN HYDROCHLORIDE (TAMSULOSIN HYDROCHLORIDE) [Concomitant]
  15. PROSCAR [Concomitant]
  16. ZANTAC [Concomitant]
  17. MONTELUKAST SODIUM [Concomitant]
  18. SEREVENT [Concomitant]
  19. FLOVENT [Concomitant]
  20. ACTIGALL [Concomitant]
  21. REMERON [Concomitant]
  22. STOOL SOFTENER [Concomitant]

REACTIONS (5)
  - CHILLS [None]
  - HYPOTENSION [None]
  - METABOLIC ENCEPHALOPATHY [None]
  - PYREXIA [None]
  - TOXIC ENCEPHALOPATHY [None]
